FAERS Safety Report 5596590-6 (Version None)
Quarter: 2008Q1

REPORT INFORMATION
  Report Type: 
  Country: None (occurrence: None)
  Receive Date: 20080118
  Receipt Date: 20080109
  Transmission Date: 20080703
  Serious: Yes (Hospitalization)
  Sender: FDA-Public Use
  Company Number: SE-PFIZER INC-2008002694

PATIENT
  Sex: Male

DRUGS (7)
  1. PREDNISOLONE [Suspect]
     Indication: CARDIAC FAILURE
     Route: 048
  2. SANDIMMUNE [Suspect]
     Indication: CARDIAC FAILURE
     Route: 048
  3. EVEROLIMUS [Suspect]
     Indication: CARDIAC FAILURE
     Dosage: DAILY DOSE:.3MG
     Route: 048
  4. METOPROLOL SUCCINATE [Concomitant]
     Route: 048
  5. FUROSEMIDE [Concomitant]
     Route: 048
  6. ALLOPURINOL [Concomitant]
     Route: 048
  7. TRIATEC [Concomitant]
     Route: 048

REACTIONS (1)
  - ABSCESS [None]
